FAERS Safety Report 14741849 (Version 5)
Quarter: 2019Q4

REPORT INFORMATION
  Report Type: Report from Study
  Country: CO (occurrence: CO)
  Receive Date: 20180410
  Receipt Date: 20191204
  Transmission Date: 20200122
  Serious: Yes (Hospitalization, Other)
  Sender: FDA-Public Use
  Company Number: CO-ASTELLAS-2018US017116

PATIENT
  Age: 62 Year
  Sex: Female
  Weight: 56 kg

DRUGS (11)
  1. TACROLIMUS. [Suspect]
     Active Substance: TACROLIMUS
     Route: 048
     Dates: start: 20180213
  2. CALCIUM CARBONATE. [Concomitant]
     Active Substance: CALCIUM CARBONATE
     Indication: PRODUCT USED FOR UNKNOWN INDICATION
     Dosage: 600 MG (2 TABLETS), EVERY 12 HOURS
     Route: 048
     Dates: start: 20180212
  3. PREDNISOLONE. [Concomitant]
     Active Substance: PREDNISOLONE
     Indication: PRODUCT USED FOR UNKNOWN INDICATION
     Route: 048
     Dates: start: 20180212
  4. TACROLIMUS. [Suspect]
     Active Substance: TACROLIMUS
     Route: 048
     Dates: start: 20190213, end: 201909
  5. CALCITRIOL. [Concomitant]
     Active Substance: CALCITRIOL
     Indication: PRODUCT USED FOR UNKNOWN INDICATION
     Dosage: UNK UNK, UNKNOWN FREQ.
     Route: 048
  6. AMLODIPINE [Concomitant]
     Active Substance: AMLODIPINE BESYLATE
     Indication: HYPERTENSION
     Dosage: 2 DF (2 TABLETS), EVERY 12 HOURS
     Route: 048
     Dates: start: 20180212
  7. MYCOPHENOLATE [Concomitant]
     Active Substance: MYCOPHENOLIC ACID
     Indication: PRODUCT USED FOR UNKNOWN INDICATION
     Dosage: 250 MG (3 TABLETS), EVERY 12 HOURS
     Route: 048
     Dates: start: 20180212
  8. ACETYLSALICYLIC ACID [Concomitant]
     Active Substance: ASPIRIN
     Indication: PRODUCT USED FOR UNKNOWN INDICATION
     Dosage: UNK UNK, UNKNOWN FREQ.
     Route: 048
  9. TACROLIMUS. [Suspect]
     Active Substance: TACROLIMUS
     Indication: LIVER TRANSPLANT
     Route: 048
     Dates: start: 20180212
  10. OMEPRAZOLE. [Concomitant]
     Active Substance: OMEPRAZOLE
     Indication: PRODUCT USED FOR UNKNOWN INDICATION
     Dosage: UNK UNK, UNKNOWN FREQ.
     Route: 048
  11. TACROLIMUS. [Suspect]
     Active Substance: TACROLIMUS
     Dosage: 2 IN AM AND 1 IN PM
     Route: 048
     Dates: start: 201909

REACTIONS (10)
  - Pneumonia [Recovered/Resolved]
  - Oropharyngeal discomfort [Recovered/Resolved]
  - Nausea [Unknown]
  - Bile duct obstruction [Recovering/Resolving]
  - Gastric disorder [Not Recovered/Not Resolved]
  - Localised infection [Recovered/Resolved]
  - Diarrhoea [Recovered/Resolved]
  - Immunosuppressant drug level increased [Unknown]
  - Malaise [Recovering/Resolving]
  - Influenza [Recovered/Resolved]

NARRATIVE: CASE EVENT DATE: 20180311
